FAERS Safety Report 10064118 (Version 1)
Quarter: 2014Q2

REPORT INFORMATION
  Report Type: Spontaneous
  Country: BR (occurrence: BR)
  Receive Date: 20140408
  Receipt Date: 20140408
  Transmission Date: 20141212
  Serious: Yes (Death)
  Sender: FDA-Public Use
  Company Number: BR-PFIZER INC-2014093996

PATIENT
  Age: 52 Year
  Sex: Male

DRUGS (1)
  1. SUTENT [Suspect]
     Indication: RENAL CELL CARCINOMA
     Dosage: 50 MG, CYCLIC (CYCLE 4 PER 2)
     Route: 048
     Dates: start: 20120910

REACTIONS (1)
  - Death [Fatal]
